FAERS Safety Report 14873942 (Version 1)
Quarter: 2018Q2

REPORT INFORMATION
  Report Type: Spontaneous
  Country: US (occurrence: US)
  Receive Date: 20180510
  Receipt Date: 20180510
  Transmission Date: 20180711
  Serious: No
  Sender: FDA-Public Use
  Company Number: US-MALLINCKRODT-T201703282

PATIENT
  Sex: Male
  Weight: 82 kg

DRUGS (1)
  1. METHADOSE [Suspect]
     Active Substance: METHADONE HYDROCHLORIDE
     Indication: DRUG DEPENDENCE
     Dosage: 80 UNITS/ML, 145 MG DAILY
     Route: 048
     Dates: start: 20121023

REACTIONS (3)
  - Product storage error [Unknown]
  - Drug ineffective [Unknown]
  - Panic reaction [Recovering/Resolving]
